FAERS Safety Report 8439894-1 (Version None)
Quarter: 2012Q2

REPORT INFORMATION
  Report Type: 
  Country: None (occurrence: None)
  Receive Date: 20120615
  Receipt Date: 20120604
  Transmission Date: 20120825
  Serious: Yes (Hospitalization)
  Sender: FDA-Public Use
  Company Number: US-ASTRAZENECA-2012SE37185

PATIENT
  Age: 18343 Day
  Sex: Female
  Weight: 42.6 kg

DRUGS (9)
  1. PLAVIX [Concomitant]
  2. MULTI-VITAMINS [Concomitant]
  3. CRESTOR [Suspect]
     Indication: BLOOD CHOLESTEROL INCREASED
     Route: 048
  4. CLONAZEPAM [Concomitant]
     Dosage: 0.5 MG, 1/2 TABLET IN THE AM AND 1/2 TABLET AT NIGHT
  5. OMEPRAZOLE [Suspect]
  6. LOOSE STOOL MEDICATION [Concomitant]
  7. TOPROL-XL [Suspect]
     Route: 048
  8. BRILINTA [Suspect]
     Indication: STENT PLACEMENT
     Route: 048
     Dates: start: 20120525
  9. ASPIRIN [Concomitant]

REACTIONS (5)
  - INTENTIONAL DRUG MISUSE [None]
  - CHEST DISCOMFORT [None]
  - DYSPNOEA [None]
  - ABDOMINAL DISCOMFORT [None]
  - PARAESTHESIA [None]
